FAERS Safety Report 7946501-0 (Version None)
Quarter: 2011Q4

REPORT INFORMATION
  Report Type: 
  Country: None (occurrence: None)
  Receive Date: 20111129
  Receipt Date: 20111117
  Transmission Date: 20120403
  Serious: Yes (Hospitalization)
  Sender: FDA-Public Use
  Company Number: US-ELI_LILLY_AND_COMPANY-US201111007048

PATIENT
  Sex: Male

DRUGS (6)
  1. PRAVASTATIN [Concomitant]
  2. CARVEDILOL [Concomitant]
  3. AMIODARONE HCL [Concomitant]
  4. LISINOPRIL [Concomitant]
  5. PLAVIX [Concomitant]
  6. FORTEO [Suspect]
     Indication: OSTEOPOROSIS
     Dosage: 20 UG, QD
     Route: 065
     Dates: start: 20100101

REACTIONS (6)
  - ROAD TRAFFIC ACCIDENT [None]
  - CEREBRAL HAEMORRHAGE [None]
  - TRAUMATIC LUNG INJURY [None]
  - BLADDER INJURY [None]
  - CLAVICLE FRACTURE [None]
  - RIB FRACTURE [None]
